FAERS Safety Report 5554517-7 (Version None)
Quarter: 2007Q4

REPORT INFORMATION
  Report Type: 
  Country: None (occurrence: None)
  Receive Date: 20071213
  Receipt Date: 20071129
  Transmission Date: 20080405
  Serious: Yes (Hospitalization)
  Sender: FDA-Public Use
  Company Number: JP-AMGEN-US244213

PATIENT
  Sex: Male
  Weight: 40 kg

DRUGS (15)
  1. ENBREL [Suspect]
     Indication: RHEUMATOID ARTHRITIS
     Route: 058
     Dates: start: 20070515, end: 20070806
  2. ENBREL [Suspect]
     Route: 058
     Dates: start: 20070824, end: 20070920
  3. ENBREL [Suspect]
     Route: 058
     Dates: start: 20070928, end: 20071030
  4. GASTER [Concomitant]
     Indication: PROPHYLAXIS AGAINST GASTROINTESTINAL ULCER
     Route: 048
     Dates: start: 20070531
  5. ISCOTIN [Concomitant]
     Indication: ANTIBIOTIC PROPHYLAXIS
     Route: 048
     Dates: start: 20070531
  6. URSO 250 [Concomitant]
     Indication: HEPATITIS C
     Route: 048
     Dates: start: 20070531
  7. GLYCYRON [Concomitant]
     Indication: HEPATITIS C
     Route: 048
     Dates: start: 20070531
  8. APTECIN [Concomitant]
     Indication: ANTIBIOTIC PROPHYLAXIS
     Route: 048
     Dates: start: 20070921, end: 20071006
  9. PYDOXAL [Concomitant]
     Route: 048
     Dates: start: 20070531
  10. ACTONEL [Concomitant]
     Dosage: UNKNOWN
     Route: 048
  11. EBUTOL [Concomitant]
     Indication: ANTIBIOTIC PROPHYLAXIS
     Route: 048
     Dates: start: 20070921
  12. PYRAMIDE [Concomitant]
     Indication: ANTIBIOTIC PROPHYLAXIS
     Route: 048
     Dates: start: 20070927
  13. BONALON [Concomitant]
     Indication: OSTEOPOROSIS
     Route: 048
     Dates: start: 20070920, end: 20071004
  14. PREDNISOLONE [Concomitant]
     Indication: RHEUMATOID ARTHRITIS
     Route: 048
     Dates: start: 20070417
  15. IRSOGLADINE MALEATE [Concomitant]
     Indication: PROPHYLAXIS AGAINST GASTROINTESTINAL ULCER
     Route: 048
     Dates: start: 20070531

REACTIONS (2)
  - HEPATIC FUNCTION ABNORMAL [None]
  - TUBERCULOSIS SKIN TEST POSITIVE [None]
